FAERS Safety Report 9312319 (Version 1)
Quarter: 2013Q2

REPORT INFORMATION
  Report Type: Spontaneous
  Country: RU (occurrence: RU)
  Receive Date: 20130528
  Receipt Date: 20130528
  Transmission Date: 20140414
  Serious: Yes (Other)
  Sender: FDA-Public Use
  Company Number: RU-BAYER-2013-064663

PATIENT
  Age: 2 Month
  Sex: Male

DRUGS (1)
  1. ULTRAVIST [Suspect]
     Indication: COMPUTERISED TOMOGRAM
     Dosage: 14 ML, ONCE
     Route: 042
     Dates: start: 20130430, end: 20130430

REACTIONS (1)
  - Urine output decreased [Recovered/Resolved]
